FAERS Safety Report 4944374-1 (Version None)
Quarter: 2006Q1

REPORT INFORMATION
  Report Type: 
  Country: None (occurrence: None)
  Receive Date: 20060315
  Receipt Date: 20051018
  Transmission Date: 20060701
  Serious: Yes (Other)
  Sender: FDA-Public Use
  Company Number: US-MERCK-0510USA07686

PATIENT
  Age: 65 Year
  Sex: Male
  Weight: 74 kg

DRUGS (6)
  1. VIOXX [Suspect]
     Indication: ARTHRITIS
     Route: 048
     Dates: start: 20000720, end: 20040930
  2. ATENOLOL [Concomitant]
     Indication: BLOOD PRESSURE
     Route: 065
  3. ATIVAN [Concomitant]
     Indication: SLEEP DISORDER
     Route: 065
  4. ACCUPRIL [Concomitant]
     Indication: BLOOD PRESSURE
     Route: 065
     Dates: end: 20040901
  5. MOTRIN [Concomitant]
     Indication: PAIN
     Route: 065
  6. NAPROXEN [Concomitant]
     Indication: PAIN
     Route: 065

REACTIONS (9)
  - CEREBRAL ATROPHY [None]
  - CEREBRAL ISCHAEMIA [None]
  - CEREBROVASCULAR ACCIDENT [None]
  - HIATUS HERNIA [None]
  - HYPERCHOLESTEROLAEMIA [None]
  - MYOCARDIAL INFARCTION [None]
  - OESOPHAGEAL STENOSIS [None]
  - SYNCOPE [None]
  - TRANSIENT ISCHAEMIC ATTACK [None]
